FAERS Safety Report 23481163 (Version 1)
Quarter: 2024Q1

REPORT INFORMATION
  Report Type: Spontaneous
  Country: US (occurrence: US)
  Receive Date: 20240205
  Receipt Date: 20240205
  Transmission Date: 20240409
  Serious: Yes (Other)
  Sender: FDA-Public Use
  Company Number: US-GLENMARK PHARMACEUTICALS-2023GMK081622

PATIENT

DRUGS (9)
  1. LITHIUM [Suspect]
     Active Substance: LITHIUM
     Indication: Bipolar disorder
     Dosage: UNK
     Route: 048
  2. LITHIUM [Suspect]
     Active Substance: LITHIUM
     Indication: Depression
  3. LITHIUM [Suspect]
     Active Substance: LITHIUM
     Indication: Nervous system disorder
  4. LITHIUM CARBONATE [Suspect]
     Active Substance: LITHIUM CARBONATE
     Indication: Bipolar disorder
     Dosage: UNK (INGESTED AT NIGHT)
     Route: 048
     Dates: start: 20230901
  5. LITHIUM CARBONATE [Suspect]
     Active Substance: LITHIUM CARBONATE
     Indication: Depression
     Dosage: UNK
     Route: 048
     Dates: start: 202304
  6. LITHIUM CARBONATE [Suspect]
     Active Substance: LITHIUM CARBONATE
     Indication: Nervous system disorder
  7. LITHIUM CARBONATE [Suspect]
     Active Substance: LITHIUM CARBONATE
     Indication: Bipolar disorder
     Dosage: 2 DOSAGE FORM, AM
     Route: 065
  8. LITHIUM CARBONATE [Suspect]
     Active Substance: LITHIUM CARBONATE
     Indication: Depression
  9. LITHIUM CARBONATE [Suspect]
     Active Substance: LITHIUM CARBONATE
     Indication: Nervous system disorder

REACTIONS (15)
  - Erectile dysfunction [Unknown]
  - Hormone level abnormal [Unknown]
  - Inflammation [Unknown]
  - Genital tract inflammation [Unknown]
  - Spinal disorder [Unknown]
  - Heart rate increased [Recovered/Resolved]
  - Musculoskeletal stiffness [Recovered/Resolved]
  - Burning sensation [Unknown]
  - Product prescribing issue [Unknown]
  - Poor quality product administered [Unknown]
  - Product dispensing error [Unknown]
  - Feeling hot [Unknown]
  - Dizziness [Recovered/Resolved]
  - Product contamination [Unknown]
  - Nausea [Unknown]

NARRATIVE: CASE EVENT DATE: 20230726
